FAERS Safety Report 8772457 (Version 2)
Quarter: 2012Q4

REPORT INFORMATION
  Report Type: 
  Country: JP (occurrence: JP)
  Receive Date: 20120905
  Receipt Date: 20121122
  Transmission Date: 20130627
  Serious: Yes (Other)
  Sender: FDA-Public Use
  Company Number: JP-009507513-1208JPN010216

PATIENT
  Age: 68 Year
  Sex: Female
  Weight: 62 kg

DRUGS (24)
  1. PEGINTRON [Suspect]
     Indication: HEPATITIS C
     Dosage: 1.5 Microgram per kilogram, qw
     Route: 058
     Dates: start: 20120508, end: 20120515
  2. PEGINTRON [Suspect]
     Dosage: 1.3 Microgram per kilogram, qw
     Route: 058
     Dates: start: 20120522, end: 20120605
  3. PEGINTRON [Suspect]
     Dosage: 0.8 Microgram per kilogram, UNK
     Route: 058
     Dates: start: 20120612, end: 20120612
  4. PEGINTRON [Suspect]
     Dosage: 1 Microgram per kilogram, qw
     Route: 058
     Dates: start: 20120619, end: 20120703
  5. PEGINTRON [Suspect]
     Dosage: 1.1 Microgram per kilogram, qw
     Route: 058
     Dates: start: 20120710, end: 20120717
  6. PEGINTRON [Suspect]
     Dosage: 0.95 Microgram per kilogram, qw
     Route: 058
     Dates: start: 20120724, end: 20120814
  7. PEGINTRON [Suspect]
     Dosage: 1.0 Microgram per kilogram, qw
     Route: 058
     Dates: start: 20120821, end: 20120828
  8. PEGINTRON [Suspect]
     Dosage: 1.0 Microgram per kilogram, qw
     Route: 058
     Dates: start: 20120904, end: 20120911
  9. PEGINTRON [Suspect]
     Dosage: 1.0 Microgram per kilogram, qw
     Route: 058
     Dates: start: 20120918
  10. REBETOL [Suspect]
     Indication: HEPATITIS C
     Dosage: 600 mg, qd
     Route: 048
     Dates: start: 20120508, end: 20120611
  11. REBETOL [Suspect]
     Dosage: 200 mg, qd
     Route: 048
     Dates: start: 20120612, end: 20120618
  12. REBETOL [Suspect]
     Dosage: 100 mg, qd
     Route: 048
     Dates: start: 20120619
  13. REBETOL [Suspect]
     Dosage: 300 mg, qd
     Route: 048
  14. TELAVIC [Suspect]
     Indication: HEPATITIS C
     Dosage: 1500 mg, qd
     Route: 048
     Dates: start: 20120508, end: 20120521
  15. TELAVIC [Suspect]
     Dosage: 750 mg, qd
     Route: 048
     Dates: start: 20120522, end: 20120731
  16. URSO [Concomitant]
     Indication: HEPATITIS C
     Dosage: 600 mg, qd
     Route: 048
     Dates: end: 20120523
  17. MYSER (CYCLOSERINE) [Concomitant]
     Indication: RASH
     Dosage: As needed
     Route: 061
  18. ACTOS [Concomitant]
     Indication: DIABETES MELLITUS
     Dosage: 15 mg, qd
     Route: 048
  19. GLIMEPIRIDE [Concomitant]
     Indication: DIABETES MELLITUS
     Dosage: 2 mg, qd
     Route: 048
  20. JANUVIA [Concomitant]
     Indication: DIABETES MELLITUS
     Dosage: 50 mg, qd
     Route: 048
  21. SEIBULE [Concomitant]
     Indication: DIABETES MELLITUS
     Dosage: 150 mg, qd
     Route: 048
  22. CO DIO [Concomitant]
     Indication: HYPERTENSION
     Dosage: 1 DF, qd
     Route: 048
     Dates: end: 20120714
  23. ALOSITOL [Concomitant]
     Indication: HYPERURICAEMIA
     Dosage: 100 mg, qd
     Route: 048
     Dates: start: 20120508
  24. RESTAMIN [Concomitant]
     Indication: RASH
     Dosage: UNK
     Route: 061
     Dates: start: 20110511

REACTIONS (2)
  - Agranulocytosis [Unknown]
  - Neutropenia [Recovered/Resolved]
